FAERS Safety Report 10245480 (Version 2)
Quarter: 2014Q3

REPORT INFORMATION
  Report Type: Other
  Country: JP (occurrence: JP)
  Receive Date: 20140618
  Receipt Date: 20140723
  Transmission Date: 20150326
  Serious: Yes (Other)
  Sender: FDA-Public Use
  Company Number: JP-BRISTOL-MYERS SQUIBB COMPANY-21059142

PATIENT
  Age: 37 Year
  Sex: Female

DRUGS (6)
  1. METGLUCO [Suspect]
     Active Substance: METFORMIN HYDROCHLORIDE
     Indication: INSULIN RESISTANCE
     Dosage: 500MG FROM09AUG12TO12AUG12
     Route: 048
     Dates: start: 20110725, end: 20120812
  2. CLOMID [Concomitant]
     Active Substance: CLOMIPHENE CITRATE
     Indication: OVULATION DISORDER
     Dosage: 200MG/DAY-04NOV09TO03DEC10.
     Route: 048
     Dates: start: 20090709, end: 20101203
  3. CYCLOFENIL [Concomitant]
     Active Substance: CYCLOFENIL
     Indication: OVULATION DISORDER
     Dosage: 28FEB11TO04MAR11,600MG/DAY FROM 28MAR11TO03AUG11.
     Route: 048
     Dates: start: 20110228, end: 20110803
  4. SUPRECUR [Concomitant]
     Active Substance: BUSERELIN
     Indication: OVULATION DISORDER
     Dates: start: 20120321, end: 20120421
  5. METFORMIN [Suspect]
     Active Substance: METFORMIN HYDROCHLORIDE
     Indication: INSULIN RESISTANCE
     Dosage: 750MG-FROM22JAN10 TO 24JUL11
     Route: 048
     Dates: start: 20070625, end: 20110724
  6. MAGNESIUM OXIDE. [Concomitant]
     Active Substance: MAGNESIUM OXIDE
     Indication: CONSTIPATION
     Route: 048
     Dates: start: 20101102, end: 20101201

REACTIONS (4)
  - Normal newborn [Recovered/Resolved]
  - Maternal exposure during pregnancy [Recovered/Resolved]
  - Depressive symptom [Unknown]
  - Gestational diabetes [Recovered/Resolved]

NARRATIVE: CASE EVENT DATE: 20100528
